FAERS Safety Report 9283637 (Version 2)
Quarter: 2013Q3

REPORT INFORMATION
  Report Type: Spontaneous
  Country: IT (occurrence: IT)
  Receive Date: 20130510
  Receipt Date: 20130920
  Transmission Date: 20140515
  Serious: Yes (Hospitalization)
  Sender: FDA-Public Use
  Company Number: PHHY2013IT045391

PATIENT
  Sex: Female

DRUGS (2)
  1. LAMOTRIGINE [Suspect]
     Indication: DRUG ABUSE
     Dosage: UNK UKN, UNK
     Route: 048
     Dates: start: 20130331, end: 20130331
  2. SEROQUEL [Suspect]
     Indication: DRUG ABUSE
     Dosage: UNK UKN, UNK
     Route: 048
     Dates: start: 20130331, end: 20130331

REACTIONS (5)
  - Faecal incontinence [Recovered/Resolved]
  - Sopor [Recovered/Resolved]
  - Vomiting [Recovered/Resolved]
  - Psychomotor hyperactivity [Recovered/Resolved]
  - Drug abuse [Recovered/Resolved]
